FAERS Safety Report 6714410-0 (Version None)
Quarter: 2010Q2

REPORT INFORMATION
  Report Type: 
  Country: None (occurrence: None)
  Receive Date: 20100506
  Receipt Date: 20100427
  Transmission Date: 20101027
  Serious: Yes (Hospitalization, Other)
  Sender: FDA-Public Use
  Company Number: RU-AMGEN-KDC402961

PATIENT
  Sex: Male
  Weight: 75.4 kg

DRUGS (3)
  1. PANITUMUMAB [Suspect]
     Indication: SQUAMOUS CELL CARCINOMA
     Route: 042
     Dates: start: 20100330, end: 20100330
  2. ONDANSETRON [Concomitant]
     Route: 042
     Dates: start: 20010330, end: 20100401
  3. DROTAVERINE HCL [Concomitant]
     Route: 048
     Dates: start: 20100201

REACTIONS (2)
  - HYPERCALCAEMIA [None]
  - HYPOTENSION [None]
